FAERS Safety Report 5640644-2 (Version None)
Quarter: 2008Q1

REPORT INFORMATION
  Report Type: 
  Country: None (occurrence: None)
  Receive Date: 20080225
  Receipt Date: 20080207
  Transmission Date: 20080703
  Serious: No
  Sender: FDA-Public Use
  Company Number: 8029874

PATIENT
  Age: 7 Year
  Sex: Male
  Weight: 27.6 kg

DRUGS (2)
  1. METHYLPHENIDATE HCL [Suspect]
     Dosage: 10 MG 1/D
     Dates: start: 20070106, end: 20070112
  2. METHYLPHENIDATE HCL [Suspect]
     Dosage: 20 MG 1/D
     Dates: start: 20070113

REACTIONS (9)
  - CRYING [None]
  - FATIGUE [None]
  - GASTROINTESTINAL PAIN [None]
  - HEADACHE [None]
  - HYPOTONIA [None]
  - MOROSE [None]
  - ONYCHOPHAGIA [None]
  - SLEEP DISORDER [None]
  - TIC [None]
